FAERS Safety Report 8203211-2 (Version None)
Quarter: 2012Q1

REPORT INFORMATION
  Report Type: 
  Country: None (occurrence: None)
  Receive Date: 20120312
  Receipt Date: 20120229
  Transmission Date: 20120608
  Serious: Yes (Disabling, Other)
  Sender: FDA-Public Use
  Company Number: TR-ROCHE-1044264

PATIENT
  Sex: Female

DRUGS (1)
  1. XELODA [Suspect]
     Indication: GASTRIC CANCER
     Dosage: DOSE: 500 MG3 PLUS 2
     Route: 048
     Dates: start: 20120225, end: 20120228

REACTIONS (3)
  - HYPERTENSION [None]
  - HEADACHE [None]
  - BLINDNESS [None]
